FAERS Safety Report 16465177 (Version 1)
Quarter: 2019Q2

REPORT INFORMATION
  Report Type: Spontaneous
  Country: DK (occurrence: DK)
  Receive Date: 20190621
  Receipt Date: 20190621
  Transmission Date: 20190711
  Serious: Yes (Other)
  Sender: FDA-Public Use
  Company Number: DK-PFIZER INC-2019267517

PATIENT
  Age: 5 Year
  Sex: Female

DRUGS (5)
  1. INFLIXIMAB PFIZER [Suspect]
     Active Substance: INFLIXIMAB
     Indication: PUSTULAR PSORIASIS
     Dosage: 6.5 MG/KG, 3X/DAY (2 WEEKS INTERVAL AND THEREAFTER EVERY 4 WEEKS)
  2. ANAKINRA [Suspect]
     Active Substance: ANAKINRA
     Indication: PUSTULAR PSORIASIS
     Dosage: 4 MG/KG, DAILY
     Route: 065
  3. ANAKINRA [Suspect]
     Active Substance: ANAKINRA
     Dosage: 8 MG/KG, DAILY
     Route: 065
  4. METHOTREXATE SODIUM. [Suspect]
     Active Substance: METHOTREXATE SODIUM
     Indication: PUSTULAR PSORIASIS
     Dosage: UNK
     Route: 065
  5. ETANERCEPT [Suspect]
     Active Substance: ETANERCEPT
     Indication: PUSTULAR PSORIASIS
     Dosage: UNK
     Route: 065

REACTIONS (4)
  - Skin lesion [Unknown]
  - Condition aggravated [Unknown]
  - Therapy non-responder [Unknown]
  - Anaphylactoid reaction [Unknown]
